FAERS Safety Report 9799811 (Version 1)
Quarter: 2014Q1

REPORT INFORMATION
  Report Type: Spontaneous
  Country: US (occurrence: None)
  Receive Date: 20140103
  Receipt Date: 20140103
  Transmission Date: 20141002
  Serious: No
  Sender: FDA-Public Use
  Company Number: None

PATIENT
  Age: 64 Year
  Sex: Female

DRUGS (1)
  1. FORTEO 600 MCG LILLY [Suspect]
     Indication: OSTEOPOROSIS
     Dosage: 20 MCG, DAILY, SQ
     Dates: start: 20130909

REACTIONS (5)
  - Pain in jaw [None]
  - Hyponatraemia [None]
  - Hypertension [None]
  - Arthralgia [None]
  - Oedema peripheral [None]
